FAERS Safety Report 17242235 (Version 1)
Quarter: 2019Q4

REPORT INFORMATION
  Report Type: Spontaneous
  Country: US (occurrence: US)
  Receive Date: 20191212
  Receipt Date: 20191212
  Transmission Date: 20200122
  Serious: No
  Sender: FDA-Public Use
  Company Number: None

PATIENT
  Sex: Female

DRUGS (3)
  1. AMIKACIN SULFATE. [Suspect]
     Active Substance: AMIKACIN SULFATE
     Indication: MYCOBACTERIUM AVIUM COMPLEX INFECTION
     Route: 042
     Dates: start: 20190605
  2. PRIMAXINE [Concomitant]
  3. CEFTAROLINE [Concomitant]
     Active Substance: CEFTAROLINE

REACTIONS (1)
  - Deafness [None]
